FAERS Safety Report 8240272-9 (Version None)
Quarter: 2012Q1

REPORT INFORMATION
  Report Type: 
  Country: None (occurrence: None)
  Receive Date: 20120328
  Receipt Date: 20120328
  Transmission Date: 20120608
  Serious: Yes (Other)
  Sender: FDA-Public Use
  Company Number: None

PATIENT
  Sex: Female
  Weight: 81.646 kg

DRUGS (1)
  1. ZICAM [Suspect]
     Indication: NASOPHARYNGITIS
     Dosage: 20 SWABS
     Dates: start: 20080101, end: 20110101

REACTIONS (3)
  - NASAL DISCOMFORT [None]
  - HYPOSMIA [None]
  - HYPOGEUSIA [None]
